FAERS Safety Report 16400191 (Version 1)
Quarter: 2019Q2

REPORT INFORMATION
  Report Type: Spontaneous
  Country: US (occurrence: US)
  Receive Date: 20190606
  Receipt Date: 20190606
  Transmission Date: 20190711
  Serious: No
  Sender: FDA-Public Use
  Company Number: US-ALLERGAN-1918480US

PATIENT

DRUGS (1)
  1. KYBELLA [Suspect]
     Active Substance: DEOXYCHOLIC ACID
     Indication: FAT TISSUE INCREASED
     Dosage: SINGLE, 2 VIALS
     Route: 065
     Dates: start: 20190401, end: 20190401

REACTIONS (2)
  - Nodule [Unknown]
  - Contusion [Unknown]

NARRATIVE: CASE EVENT DATE: 201904
